FAERS Safety Report 5515365-7 (Version None)
Quarter: 2007Q4

REPORT INFORMATION
  Report Type: 
  Country: None (occurrence: None)
  Receive Date: 20071109
  Receipt Date: 20071029
  Transmission Date: 20080405
  Serious: Yes (Death, Life-Threatening, Hospitalization)
  Sender: FDA-Public Use
  Company Number: 2007US002716

PATIENT
  Age: 51 Year
  Sex: Male
  Weight: 77.1 kg

DRUGS (7)
  1. AMEVIVE [Suspect]
     Indication: GRAFT VERSUS HOST DISEASE
     Dosage: 0.1 MG/KG, WEEKLY, IV BOLUS
     Route: 040
     Dates: start: 20060421, end: 20060427
  2. METHYLPREDNISOLONE [Concomitant]
  3. IMIPENEM (IMIPENEM) [Concomitant]
  4. PENICILLIN G [Concomitant]
  5. CASPOFUNGIN (CASPOFUNGIN) [Concomitant]
  6. GANCICLOVIR [Concomitant]
  7. VORICONAZOLE (VORICONAZOLE) [Concomitant]

REACTIONS (10)
  - BRONCHOPULMONARY ASPERGILLOSIS [None]
  - CREPITATIONS [None]
  - CYTOMEGALOVIRUS TEST POSITIVE [None]
  - DYSPNOEA [None]
  - LUNG INFILTRATION [None]
  - PNEUMONIA [None]
  - RESPIRATORY DISTRESS [None]
  - RESPIRATORY FAILURE [None]
  - TACHYCARDIA [None]
  - TACHYPNOEA [None]
